FAERS Safety Report 8002841-0 (Version None)
Quarter: 2011Q4

REPORT INFORMATION
  Report Type: 
  Country: None (occurrence: None)
  Receive Date: 20111222
  Receipt Date: 20101203
  Transmission Date: 20120403
  Serious: No
  Sender: FDA-Public Use
  Company Number: US-GLAXOSMITHKLINE-A0897655A

PATIENT
  Age: 77 Year
  Sex: Male

DRUGS (10)
  1. KLOR-CON [Concomitant]
  2. TEKTURNA [Concomitant]
  3. ARICEPT [Concomitant]
  4. LORAZEPAM [Concomitant]
  5. ASPIRIN [Concomitant]
  6. BYSTOLIC [Concomitant]
  7. AVODART [Suspect]
     Indication: BENIGN PROSTATIC HYPERPLASIA
     Dosage: 1CAP PER DAY
     Route: 048
     Dates: start: 20091101
  8. ACETAMINOPHEN [Concomitant]
  9. OMEPRAZOLE [Concomitant]
  10. NIFEDIPINE [Concomitant]

REACTIONS (1)
  - DRUG ADMINISTRATION ERROR [None]
